FAERS Safety Report 9300942 (Version 1)
Quarter: 2013Q2

REPORT INFORMATION
  Report Type: Report from Study
  Country: US (occurrence: US)
  Receive Date: 20130521
  Receipt Date: 20130521
  Transmission Date: 20140414
  Serious: Yes (Hospitalization)
  Sender: FDA-Public Use
  Company Number: US-PFIZER INC-2013152465

PATIENT
  Age: 51 Year
  Sex: Female

DRUGS (3)
  1. GABAPENTIN [Suspect]
     Dosage: UNK
  2. ALCOHOL [Suspect]
     Dosage: UNK
  3. COCAINE [Suspect]
     Dosage: UNK

REACTIONS (5)
  - Drug abuse [Unknown]
  - Delirium [Unknown]
  - Somnolence [Unknown]
  - Ataxia [Unknown]
  - Withdrawal syndrome [Unknown]
